FAERS Safety Report 5377272-2 (Version None)
Quarter: 2007Q3

REPORT INFORMATION
  Report Type: 
  Country: None (occurrence: None)
  Receive Date: 20070703
  Receipt Date: 20070626
  Transmission Date: 20080115
  Serious: Yes (Other)
  Sender: FDA-Public Use
  Company Number: JP-ASTRAZENECA-2007AP03977

PATIENT
  Age: 30113 Day
  Sex: Male
  Weight: 60 kg

DRUGS (7)
  1. CRESTOR [Suspect]
     Indication: HYPERCHOLESTEROLAEMIA
     Route: 048
     Dates: start: 20070518, end: 20070520
  2. DEPAS [Concomitant]
     Indication: NEUROSIS
     Route: 048
     Dates: start: 20030708
  3. MUCOSTA [Concomitant]
     Indication: GASTRITIS
     Route: 048
     Dates: start: 20040607
  4. URINORM [Concomitant]
     Indication: HYPERURICAEMIA
     Route: 048
     Dates: start: 20050813
  5. GASTER D [Concomitant]
     Indication: GASTRIC ULCER
     Route: 048
     Dates: start: 20060317
  6. CEPHADOL [Concomitant]
     Indication: DIZZINESS
     Route: 048
     Dates: start: 20070403
  7. MENIACE [Concomitant]
     Indication: DIZZINESS
     Route: 048
     Dates: start: 20070403

REACTIONS (1)
  - URINARY RETENTION [None]
